FAERS Safety Report 18846049 (Version 1)
Quarter: 2021Q1

REPORT INFORMATION
  Report Type: Spontaneous
  Country: US (occurrence: US)
  Receive Date: 20210204
  Receipt Date: 20210204
  Transmission Date: 20210419
  Serious: Yes (Hospitalization, Disabling, Other)
  Sender: FDA-Public Use
  Company Number: None

PATIENT
  Age: 50 Year
  Sex: Female
  Weight: 90.9 kg

DRUGS (8)
  1. SEVELAMER CARBONATE. [Concomitant]
     Active Substance: SEVELAMER CARBONATE
  2. LEVOTHYROXINE. [Concomitant]
     Active Substance: LEVOTHYROXINE
  3. ALPRAZOLAM. [Concomitant]
     Active Substance: ALPRAZOLAM
  4. FLUOXETINE [Concomitant]
     Active Substance: FLUOXETINE HYDROCHLORIDE
  5. PRIMIPEXOLE [Concomitant]
     Active Substance: PRAMIPEXOLE
  6. EZETIMIBE. [Concomitant]
     Active Substance: EZETIMIBE
  7. VALTREX [Suspect]
     Active Substance: VALACYCLOVIR HYDROCHLORIDE
     Indication: HERPES ZOSTER
     Route: 048
     Dates: start: 20201217, end: 20201219
  8. METROPRALOL [Concomitant]

REACTIONS (12)
  - Heart rate decreased [None]
  - Overdose [None]
  - Disturbance in attention [None]
  - Balance disorder [None]
  - Posterior reversible encephalopathy syndrome [None]
  - Dysstasia [None]
  - Tachyphrenia [None]
  - Blood pressure increased [None]
  - Feeling abnormal [None]
  - Panic attack [None]
  - Product use issue [None]
  - Contusion [None]

NARRATIVE: CASE EVENT DATE: 20201219
